FAERS Safety Report 16764566 (Version 1)
Quarter: 2019Q3

REPORT INFORMATION
  Report Type: Spontaneous
  Country: US (occurrence: US)
  Receive Date: 20190902
  Receipt Date: 20190902
  Transmission Date: 20191005
  Serious: No
  Sender: FDA-Public Use
  Company Number: US-009507513-1908USA007423

PATIENT
  Sex: Female

DRUGS (1)
  1. FOLLISTIM AQ [Suspect]
     Active Substance: FOLLITROPIN
     Indication: INFERTILITY FEMALE
     Dosage: 300 INTERNATIONAL UNIT, QD
     Route: 058
     Dates: start: 20190325

REACTIONS (3)
  - Rash pruritic [Unknown]
  - Injection site rash [Unknown]
  - Rash erythematous [Unknown]

NARRATIVE: CASE EVENT DATE: 2019
